FAERS Safety Report 5371940-4 (Version None)
Quarter: 2007Q2

REPORT INFORMATION
  Report Type: 
  Country: None (occurrence: None)
  Receive Date: 20070625
  Receipt Date: 20070611
  Transmission Date: 20071010
  Serious: Yes (Hospitalization, Other)
  Sender: FDA-Public Use
  Company Number: 100#08#2007-02159

PATIENT
  Age: 71 Year
  Sex: Female

DRUGS (1)
  1. HYDROCHLOROTHIAZIDE/AMILORIDE (TABLETS) (HYDROCHLOROTHIAZIDE, AMILORID [Suspect]
     Indication: HYPERTENSION
     Dosage: ORAL ONCE
     Route: 048

REACTIONS (12)
  - ACIDOSIS [None]
  - ACUTE RESPIRATORY FAILURE [None]
  - DYSPNOEA [None]
  - LEUKOPENIA [None]
  - MALAISE [None]
  - PULMONARY CONGESTION [None]
  - PULMONARY OEDEMA [None]
  - RALES [None]
  - RESPIRATORY FAILURE [None]
  - SHOCK [None]
  - SIMILAR REACTION ON PREVIOUS EXPOSURE TO DRUG [None]
  - WHEEZING [None]
